FAERS Safety Report 6285122-5 (Version None)
Quarter: 2009Q3

REPORT INFORMATION
  Report Type: 
  Country: None (occurrence: None)
  Receive Date: 20090727
  Receipt Date: 20090717
  Transmission Date: 20100115
  Serious: Yes (Other)
  Sender: FDA-Public Use
  Company Number: BR-PFIZER INC-2009242980

PATIENT
  Age: 28 Year

DRUGS (4)
  1. DEPO-PROVERA [Suspect]
     Indication: CONTRACEPTION
     Dosage: 150 MG, TRIMESTRAL
     Dates: start: 20090601
  2. MOXIFLOXACIN HCL [Concomitant]
     Dosage: UNK
  3. NIMESULIDE [Concomitant]
     Dosage: UNK
  4. BUSCOPAN [Concomitant]
     Dosage: UNK

REACTIONS (1)
  - RENAL DISORDER [None]
